FAERS Safety Report 17812024 (Version 1)
Quarter: 2020Q2

REPORT INFORMATION
  Report Type: Spontaneous
  Country: ZA (occurrence: ZA)
  Receive Date: 20200521
  Receipt Date: 20200521
  Transmission Date: 20200714
  Serious: Yes (Hospitalization, Other)
  Sender: FDA-Public Use
  Company Number: ZA-PFIZER INC-2020169504

PATIENT
  Age: 73 Year
  Sex: Female

DRUGS (4)
  1. SALAZOPYRIN [Suspect]
     Active Substance: SULFASALAZINE
     Dosage: 1 G, 2X/DAY
  2. PLASMOQUINE [Suspect]
     Active Substance: CHLOROQUINE SULFATE
     Dosage: 200 G, DAILY
  3. ARAVA [Suspect]
     Active Substance: LEFLUNOMIDE
     Dosage: UNK
     Dates: start: 20200305
  4. METHOTREXATE SODIUM. [Suspect]
     Active Substance: METHOTREXATE SODIUM
     Dosage: 25 MG, DAILY
     Dates: start: 20191203

REACTIONS (4)
  - Abscess [Unknown]
  - Condition aggravated [Unknown]
  - Treatment failure [Unknown]
  - Sepsis [Unknown]
